FAERS Safety Report 6741327-8 (Version None)
Quarter: 2010Q2

REPORT INFORMATION
  Report Type: 
  Country: None (occurrence: None)
  Receive Date: 20100526
  Receipt Date: 20100518
  Transmission Date: 20101027
  Serious: Yes (Other)
  Sender: FDA-Public Use
  Company Number: IN-PFIZER INC-2010063294

PATIENT

DRUGS (2)
  1. MAGNEX [Suspect]
  2. MAGNAMYCIN [Suspect]

REACTIONS (1)
  - HAEMORRHAGE [None]
